FAERS Safety Report 6705970-4 (Version None)
Quarter: 2010Q2

REPORT INFORMATION
  Report Type: 
  Country: None (occurrence: None)
  Receive Date: 20100423
  Receipt Date: 20100108
  Transmission Date: 20101027
  Serious: No
  Sender: FDA-Public Use
  Company Number: ALL1-2010-00074

PATIENT
  Age: 37 Year
  Sex: Female
  Weight: 56.7 kg

DRUGS (4)
  1. VYVANSE [Suspect]
     Indication: ATTENTION DEFICIT/HYPERACTIVITY DISORDER
     Dosage: 50 MG, 1X/DAY:QD, ORAL, 60 MG, 2X/DAY:BID, ORAL
     Route: 048
     Dates: start: 20050101
  2. VYVANSE [Suspect]
     Indication: ATTENTION DEFICIT/HYPERACTIVITY DISORDER
     Dosage: 50 MG, 1X/DAY:QD, ORAL, 60 MG, 2X/DAY:BID, ORAL
     Route: 048
     Dates: start: 20070101
  3. MS CONTIN [Concomitant]
  4. ROXICODONE [Concomitant]

REACTIONS (1)
  - DRUG SCREEN POSITIVE [None]
